FAERS Safety Report 8997997 (Version 1)
Quarter: 2013Q1

REPORT INFORMATION
  Report Type: Report from Study
  Country: PL (occurrence: PL)
  Receive Date: 20130104
  Receipt Date: 20130104
  Transmission Date: 20140127
  Serious: Yes (Hospitalization, Other)
  Sender: FDA-Public Use
  Company Number: PL-TEVA-378323ISR

PATIENT
  Age: 53 Year
  Sex: Female
  Weight: 46 kg

DRUGS (27)
  1. PACLITAXEL [Suspect]
     Indication: NON-SMALL CELL LUNG CANCER
     Dosage: EVERY 21 DAYS
     Route: 042
     Dates: start: 20120629
  2. PACLITAXEL [Suspect]
     Dosage: 227.2 MG
     Route: 042
     Dates: start: 20121023
  3. CARBOPLATIN [Suspect]
     Indication: NON-SMALL CELL LUNG CANCER
     Dosage: EVERY 21 DAYS
     Route: 042
     Dates: start: 20120629
  4. CARBOPLATIN [Suspect]
     Dosage: 510.6
     Route: 042
     Dates: start: 20121023
  5. BEVACIZUMAB [Suspect]
     Indication: NON-SMALL CELL LUNG CANCER
     Dosage: EVERY 21 DAYS
     Route: 042
     Dates: start: 20120623, end: 20120629
  6. BEVACIZUMAB [Suspect]
     Dosage: 675MG
     Dates: start: 20121023
  7. MEGF0444A (ANTI-EGFL7) [Suspect]
     Dates: start: 20121023
  8. SODIUM CHLORIDE [Concomitant]
     Indication: PREMEDICATION
     Route: 042
     Dates: start: 20120629
  9. OXYCONTIN [Concomitant]
     Indication: PAIN
     Route: 048
     Dates: start: 20120502
  10. PARACETAMOL [Concomitant]
     Indication: PAIN
     Route: 048
     Dates: start: 20120502
  11. PABI-DEXAMETHASON [Concomitant]
     Indication: PROPHYLAXIS
     Route: 048
     Dates: start: 20120626
  12. CONTIX [Concomitant]
     Indication: PROPHYLAXIS
     Route: 048
  13. ESTAZOLAM [Concomitant]
     Indication: DEPRESSION
     Route: 048
     Dates: start: 20120502
  14. BISOCARD [Concomitant]
     Indication: ATRIAL FIBRILLATION
     Route: 048
     Dates: start: 20120521
  15. MILURIT [Concomitant]
     Indication: PROPHYLAXIS
     Route: 048
     Dates: start: 20120626
  16. DEXAVEN [Concomitant]
     Indication: MALAISE
     Route: 042
     Dates: start: 20120629
  17. CLEMASTINUM [Concomitant]
     Indication: PRURITUS
     Route: 042
     Dates: start: 20120629
  18. ZANTAC [Concomitant]
     Indication: ULCER
     Route: 042
     Dates: start: 20120629
  19. FUROSEMIDE [Concomitant]
     Indication: PREMEDICATION
     Route: 042
     Dates: start: 20120626
  20. GLUCOSE 5% [Concomitant]
     Indication: PREMEDICATION
     Route: 042
     Dates: start: 20120630
  21. BISEPTOL [Concomitant]
     Route: 048
     Dates: start: 20120731, end: 20120813
  22. MAGNESIUM ASPARTATE [Concomitant]
  23. POTASSIUM ASPARTATE [Concomitant]
  24. MEGESTROL ACETATE [Concomitant]
  25. ACETATE, ASCORBIC ACID / RUTIN [Concomitant]
  26. HYDROXIZINUM [Concomitant]
  27. ETHAMSYLATE [Concomitant]

REACTIONS (1)
  - Herpes zoster [Recovered/Resolved]
